FAERS Safety Report 5055330-X (Version None)
Quarter: 2006Q3

REPORT INFORMATION
  Report Type: 
  Country: None (occurrence: None)
  Receive Date: 20060714
  Receipt Date: 20060628
  Transmission Date: 20061208
  Serious: Yes (Hospitalization)
  Sender: FDA-Public Use
  Company Number: 8017587

PATIENT
  Age: 48 Year
  Sex: Female

DRUGS (3)
  1. THEOPHYLLINE [Suspect]
  2. OXYTROPIUM BROMIDE [Suspect]
  3. INHALED CORTICOSTEROID [Suspect]
     Dosage: INH
     Route: 055

REACTIONS (1)
  - OBLITERATIVE BRONCHIOLITIS [None]
